FAERS Safety Report 9998689 (Version 1)
Quarter: 2014Q1

REPORT INFORMATION
  Report Type: Spontaneous
  Country: US (occurrence: US)
  Receive Date: 20140312
  Receipt Date: 20140312
  Transmission Date: 20141002
  Serious: No
  Sender: FDA-Public Use
  Company Number: US-BIOGENIDEC-2014BI019321

PATIENT
  Age: 52 Year
  Sex: Male

DRUGS (9)
  1. TECFIDERA [Suspect]
     Indication: PRODUCT USED FOR UNKNOWN INDICATION
     Route: 048
     Dates: start: 201308
  2. ZYRTEC [Concomitant]
  3. GABAPENTIN [Concomitant]
  4. LEXAPRO [Concomitant]
  5. MAGNESIUM [Concomitant]
  6. VITAMIN D3 [Concomitant]
  7. FISH OIL [Concomitant]
  8. VITAMIN B [Concomitant]
  9. VYVANSE [Concomitant]

REACTIONS (2)
  - Dry mouth [Unknown]
  - Flushing [Unknown]
